FAERS Safety Report 15188930 (Version 3)
Quarter: 2021Q2

REPORT INFORMATION
  Report Type: Report from Study
  Country: US (occurrence: US)
  Receive Date: 20180724
  Receipt Date: 20210527
  Transmission Date: 20210716
  Serious: Yes (Other)
  Sender: FDA-Public Use
  Company Number: US-AMGEN-USASP2018098222

PATIENT
  Age: 49 Year
  Sex: Male

DRUGS (3)
  1. ENBREL [Suspect]
     Active Substance: ETANERCEPT
     Indication: PSORIASIS
     Dosage: 50 MG, 2 TIMES/WK
     Route: 065
  2. ENBREL [Suspect]
     Active Substance: ETANERCEPT
     Dosage: 50 MILLIGRAM, 2 TIMES/WK
     Route: 065
  3. ENBREL [Suspect]
     Active Substance: ETANERCEPT
     Dosage: 50 MG, 2 TIMES/WK
     Route: 065

REACTIONS (12)
  - Pulmonary embolism [Unknown]
  - Dermatitis contact [Not Recovered/Not Resolved]
  - Psoriasis [Unknown]
  - Impaired healing [Unknown]
  - Localised infection [Unknown]
  - Wound [Unknown]
  - Wrong technique in product usage process [Unknown]
  - Product storage error [Unknown]
  - Joint swelling [Unknown]
  - Thrombosis [Unknown]
  - Poor peripheral circulation [Unknown]
  - Product dose omission issue [Unknown]

NARRATIVE: CASE EVENT DATE: 2012
